FAERS Safety Report 5997301-2 (Version None)
Quarter: 2008Q4

REPORT INFORMATION
  Report Type: 
  Country: None (occurrence: None)
  Receive Date: 20081204
  Receipt Date: 20081126
  Transmission Date: 20090506
  Serious: Yes (Other)
  Sender: FDA-Public Use
  Company Number: CHPA2008US20956

PATIENT
  Age: 85 Year
  Sex: Male
  Weight: 74.8 kg

DRUGS (1)
  1. BENEFIBER W/ WHEAT DEXTRIN  (WHEAT DEXTRIN) POWDER [Suspect]
     Indication: CONSTIPATION
     Dosage: 2 TPS, TID, ORAL
     Route: 048

REACTIONS (4)
  - COLONOSCOPY ABNORMAL [None]
  - DIVERTICULITIS [None]
  - DRUG DEPENDENCE [None]
  - INTENTIONAL DRUG MISUSE [None]
